FAERS Safety Report 9962938 (Version 2)
Quarter: 2014Q1

REPORT INFORMATION
  Report Type: Spontaneous
  Country: JP (occurrence: JP)
  Receive Date: 20140305
  Receipt Date: 20140305
  Transmission Date: 20141002
  Serious: Yes (Hospitalization, Other)
  Sender: FDA-Public Use
  Company Number: JP-UCBSA-107521

PATIENT
  Age: 74 Year
  Sex: Female

DRUGS (4)
  1. E-KEPPRA [Suspect]
     Indication: EPILEPSY
     Route: 048
  2. LAMICTAL [Concomitant]
     Indication: EPILEPSY
     Route: 048
  3. DEPAKENE-R [Concomitant]
     Indication: EPILEPSY
     Route: 048
  4. MYSTAN [Concomitant]
     Indication: EPILEPSY
     Route: 048

REACTIONS (1)
  - Drug reaction with eosinophilia and systemic symptoms [Unknown]
